FAERS Safety Report 6061317-0 (Version None)
Quarter: 2009Q1

REPORT INFORMATION
  Report Type: 
  Country: None (occurrence: None)
  Receive Date: 20090202
  Receipt Date: 20090127
  Transmission Date: 20090719
  Serious: Yes (Life-Threatening, Hospitalization, Disabling)
  Sender: FDA-Public Use
  Company Number: JP-MERCK-0812USA02690

PATIENT
  Age: 83 Year
  Sex: Female

DRUGS (8)
  1. ZOCOR [Suspect]
     Indication: HYPERLIPIDAEMIA
     Route: 048
     Dates: start: 19940727, end: 20081210
  2. ADALAT CC [Concomitant]
     Indication: HYPERTENSION
     Route: 048
     Dates: start: 19881029, end: 20081210
  3. LOPRESOR [Concomitant]
     Indication: HYPERTENSION
     Route: 048
     Dates: start: 19881029, end: 20081210
  4. MAGNESIUM OXIDE [Concomitant]
     Route: 048
  5. ARICEPT [Concomitant]
     Indication: DEMENTIA
     Route: 048
     Dates: start: 20061017, end: 20081210
  6. VASOTEC [Concomitant]
     Indication: HYPERTENSION
     Route: 048
     Dates: start: 19881029, end: 20081210
  7. DIAZEPAM [Concomitant]
     Route: 048
  8. ELASZYM [Concomitant]
     Indication: HYPERLIPIDAEMIA
     Route: 048
     Dates: start: 20010423, end: 20081210

REACTIONS (3)
  - HERPES ZOSTER [None]
  - RENAL FAILURE ACUTE [None]
  - RHABDOMYOLYSIS [None]
